FAERS Safety Report 19460740 (Version 1)
Quarter: 2021Q2

REPORT INFORMATION
  Report Type: Spontaneous
  Country: CA (occurrence: CA)
  Receive Date: 20210625
  Receipt Date: 20210625
  Transmission Date: 20210717
  Serious: Yes (Other)
  Sender: FDA-Public Use
  Company Number: CA-TEVA-2021-CA-1924444

PATIENT
  Age: 45 Year
  Sex: Female

DRUGS (10)
  1. MYCOPHENOLATE MOFETIL. [Suspect]
     Active Substance: MYCOPHENOLATE MOFETIL
     Indication: PRODUCT USED FOR UNKNOWN INDICATION
     Dosage: 2000 MILLIGRAM DAILY;
     Route: 048
  2. DACLIZUMAB [Suspect]
     Active Substance: DACLIZUMAB
     Indication: TRANSPLANT
     Route: 065
  3. NEORAL [Suspect]
     Active Substance: CYCLOSPORINE
     Indication: TRANSPLANT
     Route: 065
  4. REMICADE [Suspect]
     Active Substance: INFLIXIMAB
     Indication: PRODUCT USED FOR UNKNOWN INDICATION
     Route: 042
  5. ENBREL [Suspect]
     Active Substance: ETANERCEPT
     Dosage: 50 MILLIGRAM DAILY;
     Route: 058
  6. PROGRAF [Suspect]
     Active Substance: TACROLIMUS
     Indication: TRANSPLANT
     Dosage: 6 MILLIGRAM DAILY;
     Route: 048
  7. RAPAMUNE [Suspect]
     Active Substance: SIROLIMUS
     Indication: TRANSPLANT
     Route: 065
  8. ANTITHYMOCYTE IMMUNOGLOBULIN(HORSE) [Suspect]
     Active Substance: EQUINE THYMOCYTE IMMUNE GLOBULIN
     Indication: TRANSPLANT
     Route: 065
  9. PROGRAF [Suspect]
     Active Substance: TACROLIMUS
     Dosage: 4 MILLIGRAM DAILY;
     Route: 048
  10. ENBREL [Suspect]
     Active Substance: ETANERCEPT
     Indication: PRODUCT USED FOR UNKNOWN INDICATION
     Dosage: 25 MILLIGRAM DAILY;
     Route: 058

REACTIONS (5)
  - Alopecia [Not Recovered/Not Resolved]
  - Ovarian cyst [Not Recovered/Not Resolved]
  - Transplant dysfunction [Not Recovered/Not Resolved]
  - Acne [Not Recovered/Not Resolved]
  - Transplant rejection [Not Recovered/Not Resolved]
